FAERS Safety Report 6673069-1 (Version None)
Quarter: 2010Q2

REPORT INFORMATION
  Report Type: 
  Country: None (occurrence: None)
  Receive Date: 20100408
  Receipt Date: 20100329
  Transmission Date: 20101027
  Serious: Yes (Death)
  Sender: FDA-Public Use
  Company Number: US-BAXTER-2010BH008362

PATIENT
  Age: 64 Year
  Sex: Female

DRUGS (1)
  1. DIANEAL [Suspect]
     Route: 033
     Dates: end: 20100317

REACTIONS (1)
  - SEPSIS [None]
